FAERS Safety Report 4381159-1 (Version None)
Quarter: 2004Q2

REPORT INFORMATION
  Report Type: 
  Country: None (occurrence: None)
  Receive Date: 20040617
  Receipt Date: 20040617
  Transmission Date: 20050107
  Serious: Yes (Life-Threatening, Disabling)
  Sender: FDA-Public Use
  Company Number: None

PATIENT
  Age: 67 Year
  Sex: Male
  Weight: 138.3471 kg

DRUGS (5)
  1. TEQUIN [Suspect]
     Indication: URINARY TRACT INFECTION
     Dosage: STARTED 2-3 DAYS PRIOR TO ADMIT
  2. MICRONASE [Concomitant]
  3. GLUCOPHAGE [Concomitant]
  4. DURAGESIC [Concomitant]
  5. MULTIPLE DRUGS [Concomitant]

REACTIONS (4)
  - APALLIC SYNDROME [None]
  - BLOOD GLUCOSE FLUCTUATION [None]
  - HYPOGLYCAEMIA [None]
  - HYPOGLYCAEMIC COMA [None]
